FAERS Safety Report 5397196-4 (Version None)
Quarter: 2007Q3

REPORT INFORMATION
  Report Type: 
  Country: None (occurrence: None)
  Receive Date: 20070725
  Receipt Date: 20070715
  Transmission Date: 20080115
  Serious: Yes (Other)
  Sender: FDA-Public Use
  Company Number: IL-PFIZER INC-2007058020

PATIENT
  Sex: Male

DRUGS (2)
  1. VIAGRA [Suspect]
     Indication: ERECTILE DYSFUNCTION
  2. AVANDIA [Concomitant]

REACTIONS (3)
  - MACULAR OEDEMA [None]
  - RETINAL VEIN OCCLUSION [None]
  - RETINOPATHY [None]
